FAERS Safety Report 4568367-1 (Version None)
Quarter: 2005Q1

REPORT INFORMATION
  Report Type: 
  Country: None (occurrence: None)
  Receive Date: 20050131
  Receipt Date: 20050118
  Transmission Date: 20050727
  Serious: Yes (Hospitalization, Disabling)
  Sender: FDA-Public Use
  Company Number: 2004-00937

PATIENT
  Age: 66 Year
  Sex: Male
  Weight: 78 kg

DRUGS (2)
  1. VELCADE [Suspect]
     Indication: PLASMACYTOMA
     Dosage: SEE IMAGE
     Route: 040
     Dates: start: 20041104, end: 20041129
  2. VELCADE [Suspect]
     Indication: PLASMACYTOMA
     Dosage: SEE IMAGE
     Route: 040
     Dates: start: 20041004

REACTIONS (24)
  - ANISOCHROMIA [None]
  - ANISOCYTOSIS [None]
  - ARTERIAL STENOSIS [None]
  - BLINDNESS [None]
  - BLOOD CHLORIDE DECREASED [None]
  - BLOOD CREATININE INCREASED [None]
  - BLOOD SODIUM DECREASED [None]
  - BLOOD UREA INCREASED [None]
  - C-REACTIVE PROTEIN INCREASED [None]
  - DEMYELINATION [None]
  - DISEASE PROGRESSION [None]
  - DISEASE RECURRENCE [None]
  - EYE HAEMORRHAGE [None]
  - GAMMA-GLUTAMYLTRANSFERASE INCREASED [None]
  - HAEMOGLOBIN DECREASED [None]
  - LYMPHOCYTE COUNT DECREASED [None]
  - MICROCYTOSIS [None]
  - MONOCYTE COUNT INCREASED [None]
  - NEUROTOXICITY [None]
  - NEUTROPHIL COUNT INCREASED [None]
  - OPTIC ISCHAEMIC NEUROPATHY [None]
  - RED BLOOD CELL COUNT INCREASED [None]
  - THROMBOCYTOPENIA [None]
  - VISUAL ACUITY REDUCED [None]
